FAERS Safety Report 22179505 (Version 1)
Quarter: 2023Q2

REPORT INFORMATION
  Report Type: Other
  Country: JP (occurrence: None)
  Receive Date: 20230406
  Receipt Date: 20230406
  Transmission Date: 20230722
  Serious: Yes (Hospitalization, Other)
  Sender: FDA-Public Use
  Company Number: JP-ROCHE-3324750

PATIENT
  Age: 74 Year
  Sex: Female

DRUGS (1)
  1. RITUXAN [Suspect]
     Active Substance: RITUXIMAB
     Indication: Cryoglobulinaemia
     Route: 041

REACTIONS (4)
  - Septic shock [Recovered/Resolved]
  - Disseminated varicella zoster virus infection [Unknown]
  - Febrile neutropenia [Unknown]
  - Off label use [Unknown]
